FAERS Safety Report 11663070 (Version 1)
Quarter: 2015Q4

REPORT INFORMATION
  Report Type: Spontaneous
  Country: US (occurrence: US)
  Receive Date: 20151027
  Receipt Date: 20151027
  Transmission Date: 20160304
  Serious: No
  Sender: FDA-Public Use
  Company Number: US-MEDA-2010090068

PATIENT
  Age: 60 Year
  Sex: Male

DRUGS (6)
  1. ONSOLIS [Suspect]
     Active Substance: FENTANYL CITRATE
     Indication: CANCER PAIN
     Dosage: TITRATE UP TO 4-200 MCG/DOSE
     Route: 002
     Dates: start: 20100401, end: 20100503
  2. ONSOLIS [Suspect]
     Active Substance: FENTANYL CITRATE
     Indication: CANCER PAIN
     Route: 002
     Dates: start: 20100504, end: 20100519
  3. ONSOLIS [Suspect]
     Active Substance: FENTANYL CITRATE
     Indication: CANCER PAIN
     Route: 002
     Dates: start: 20100520, end: 20100714
  4. RADIATION [Suspect]
     Active Substance: RADIATION THERAPY
     Indication: LIP AND/OR ORAL CAVITY CANCER
  5. STERIOD [Suspect]
     Active Substance: UNSPECIFIED INGREDIENT
     Indication: LIP AND/OR ORAL CAVITY CANCER
     Dates: start: 201006, end: 201006
  6. ONSOLIS [Suspect]
     Active Substance: FENTANYL CITRATE
     Indication: CANCER PAIN
     Route: 002
     Dates: start: 20100715

REACTIONS (1)
  - Mouth ulceration [Not Recovered/Not Resolved]

NARRATIVE: CASE EVENT DATE: 201006
